FAERS Safety Report 13330955 (Version 1)
Quarter: 2017Q1

REPORT INFORMATION
  Report Type: Spontaneous
  Country: PT (occurrence: PT)
  Receive Date: 20170314
  Receipt Date: 20170314
  Transmission Date: 20170428
  Serious: Yes (Other)
  Sender: FDA-Public Use
  Company Number: PT-ACCORD-049053

PATIENT
  Age: 47 Year
  Sex: Female

DRUGS (1)
  1. CISPLATINA ACCORD [Suspect]
     Active Substance: CISPLATIN
     Indication: VAGINAL CANCER
     Route: 042
     Dates: start: 20170206

REACTIONS (4)
  - Dermatitis bullous [Recovered/Resolved]
  - Rash papular [Recovered/Resolved]
  - Off label use [Unknown]
  - Rash pruritic [Recovered/Resolved]

NARRATIVE: CASE EVENT DATE: 20170206
